FAERS Safety Report 4434976-3 (Version None)
Quarter: 2004Q3

REPORT INFORMATION
  Report Type: 
  Country: None (occurrence: None)
  Receive Date: 20040726
  Receipt Date: 20040511
  Transmission Date: 20050211
  Serious: No
  Sender: FDA-Public Use
  Company Number: USA040567244

PATIENT
  Age: 76 Year
  Sex: Female

DRUGS (2)
  1. FORTEO [Suspect]
     Indication: OSTEOPOROSIS
     Dosage: 20 UG IN THE MORNING
     Dates: start: 20040506
  2. CALCIUM CARBONATE [Concomitant]

REACTIONS (3)
  - ASTHENIA [None]
  - FATIGUE [None]
  - SOMNOLENCE [None]
